FAERS Safety Report 19156600 (Version 1)
Quarter: 2021Q2

REPORT INFORMATION
  Report Type: Spontaneous
  Country: DE (occurrence: DE)
  Receive Date: 20210420
  Receipt Date: 20210420
  Transmission Date: 20210717
  Serious: Yes (Death, Congenital Anomaly, Other)
  Sender: FDA-Public Use
  Company Number: DE-AUROBINDO-AUR-APL-2017-11788

PATIENT
  Sex: Female
  Weight: 2.8 kg

DRUGS (1)
  1. VALSARTAN. [Suspect]
     Active Substance: VALSARTAN
     Indication: ESSENTIAL HYPERTENSION
     Dosage: UNK
     Route: 064

REACTIONS (12)
  - Foetal growth restriction [Not Recovered/Not Resolved]
  - Foetal exposure during pregnancy [Unknown]
  - Hand deformity [Not Recovered/Not Resolved]
  - Pneumothorax [Not Recovered/Not Resolved]
  - Anuria [Unknown]
  - Hypotonia [Unknown]
  - Cardiopulmonary failure [Fatal]
  - Pulmonary hypoplasia [Unknown]
  - Persistent foetal circulation [Unknown]
  - Hypotension [Unknown]
  - Hypocalvaria [Not Recovered/Not Resolved]
  - Pregnancy [Unknown]
